FAERS Safety Report 23894993 (Version 2)
Quarter: 2024Q3

REPORT INFORMATION
  Report Type: Spontaneous
  Country: US (occurrence: US)
  Receive Date: 20240524
  Receipt Date: 20240814
  Transmission Date: 20241016
  Serious: No
  Sender: BRISTOL MYERS SQUIBB
  Company Number: US-BRISTOL-MYERS SQUIBB COMPANY-2024-081565

PATIENT
  Age: 69 Year
  Sex: Male
  Weight: 103.42 kg

DRUGS (2)
  1. REVLIMID [Suspect]
     Active Substance: LENALIDOMIDE
     Indication: Plasma cell myeloma
     Route: 048
  2. REVLIMID [Suspect]
     Active Substance: LENALIDOMIDE
     Dosage: FREQUENCY: DAILY FOR 21 DAYS
     Route: 048

REACTIONS (4)
  - Fatigue [Recovering/Resolving]
  - Vitamin D decreased [Recovering/Resolving]
  - Frequent bowel movements [Recovering/Resolving]
  - Intervertebral disc compression [Not Recovered/Not Resolved]
